FAERS Safety Report 19839279 (Version 1)
Quarter: 2021Q3

REPORT INFORMATION
  Report Type: Spontaneous
  Country: NL (occurrence: FR)
  Receive Date: 20210916
  Receipt Date: 20210916
  Transmission Date: 20211014
  Serious: Yes (Life-Threatening)
  Sender: FDA-Public Use
  Company Number: FR-FRESENIUS KABI-FK202109764

PATIENT
  Age: 69 Year
  Sex: Female
  Weight: 61 kg

DRUGS (21)
  1. CARBOPLATIN (MANUFACTURER UNKNOWN) [Suspect]
     Active Substance: CARBOPLATIN
     Indication: OVARIAN EPITHELIAL CANCER
     Route: 041
     Dates: start: 20210519, end: 20210519
  2. VENLAFAXINE [Suspect]
     Active Substance: VENLAFAXINE HYDROCHLORIDE
     Indication: DEPRESSION
     Route: 048
  3. AMLODIPINE [Concomitant]
     Active Substance: AMLODIPINE BESYLATE
     Indication: HYPERTENSION
     Route: 048
  4. LEVETIRACETAM DIHYDROCHLORIDE [Suspect]
     Active Substance: LEVETIRACETAM
     Indication: STATUS EPILEPTICUS
     Dosage: KEPPRA 100 MG/ML, SOLUTION TO DILUTE FOR INFUSION
     Route: 041
     Dates: start: 20210623, end: 20210623
  5. PIPERACILLIN. [Suspect]
     Active Substance: PIPERACILLIN SODIUM
     Indication: PSEUDOMONAS INFECTION
     Dosage: PIPERACILLINE BASE
     Route: 041
     Dates: start: 20210617, end: 20210707
  6. CLONAZEPAM. [Suspect]
     Active Substance: CLONAZEPAM
     Indication: STATUS EPILEPTICUS
     Route: 065
     Dates: start: 20210623, end: 20210623
  7. LANSOPRAZOLE. [Concomitant]
     Active Substance: LANSOPRAZOLE
     Indication: PRODUCT USED FOR UNKNOWN INDICATION
     Route: 048
  8. LACOSAMIDE. [Suspect]
     Active Substance: LACOSAMIDE
     Indication: EPILEPSY
     Dosage: VIMPAT 10 MG/ML,  SOLUTION FOR INFUSION
     Route: 041
     Dates: start: 20210617
  9. SODIUM BICARBONATE/POTASSIUM CHLORIDE/SODIUM CHLORIDE/SODIUM SULFATE ANHYDROUS/MACROGOL 3350 [Concomitant]
     Active Substance: POLYETHYLENE GLYCOL 3350\POTASSIUM CHLORIDE\SODIUM BICARBONATE\SODIUM CHLORIDE\SODIUM SULFATE
     Indication: CONSTIPATION
     Dosage: TRANSIPEG 5,9 G, POWDER FOR DRINKABLE SOLUTION IN SINGLE SERVING SACHET
     Route: 048
  10. HYDROCHLOROTHIAZIDE. [Concomitant]
     Active Substance: HYDROCHLOROTHIAZIDE
     Indication: HYPERTENSION
     Route: 048
  11. ACICLOVIR [Suspect]
     Active Substance: ACYCLOVIR
     Indication: NERVOUS SYSTEM DISORDER
     Route: 041
  12. CARBAMAZEPINE. [Suspect]
     Active Substance: CARBAMAZEPINE
     Indication: STATUS EPILEPTICUS
     Dosage: TEGRETOL 200 MG,  SCORED TABLET
     Route: 048
     Dates: start: 20210625, end: 20210708
  13. TAZOBACTAM [Suspect]
     Active Substance: TAZOBACTAM
     Indication: PSEUDOMONAS INFECTION
     Route: 041
     Dates: start: 20210617
  14. CANDESARTAN CILEXETIL. [Concomitant]
     Active Substance: CANDESARTAN CILEXETIL
     Indication: HYPERTENSION
     Route: 048
  15. VALPROATE SODIUM. [Suspect]
     Active Substance: VALPROATE SODIUM
     Indication: STATUS EPILEPTICUS
     Dosage: DEPAKINE 400 MG/4 ML, INJECTABLE PREPARATION FOR INTRAVENOUS ROUTE
     Route: 041
     Dates: start: 20210623, end: 20210623
  16. LEVOTHYROXINE SODIUM. [Concomitant]
     Active Substance: LEVOTHYROXINE SODIUM
     Indication: HYPOTHYROIDISM
     Dosage: LEVOTHYROX 125 MICROGRAMMES, SCORED TABLET
  17. ENOXAPARIN SODIUM. [Concomitant]
     Active Substance: ENOXAPARIN SODIUM
     Indication: ANTICOAGULANT THERAPY
     Dosage: LOVENOX 4 000 UI ANTI?XA/0,4 ML, INJECTABLE SOLUTION IN CARTRIDGE
     Route: 058
     Dates: start: 20210624
  18. PACLITAXEL (MANUFACTURER UNKNOWN) [Suspect]
     Active Substance: PACLITAXEL
     Indication: OVARIAN EPITHELIAL CANCER
     Route: 041
     Dates: start: 20210519, end: 20210519
  19. PACLITAXEL (MANUFACTURER UNKNOWN) [Suspect]
     Active Substance: PACLITAXEL
     Route: 041
     Dates: start: 20210611, end: 20210611
  20. BISOPROLOL FUMARATE. [Concomitant]
     Active Substance: BISOPROLOL FUMARATE
     Indication: TACHYCARDIA
     Route: 048
  21. CARBOPLATIN (MANUFACTURER UNKNOWN) [Suspect]
     Active Substance: CARBOPLATIN
     Route: 041
     Dates: start: 20210611, end: 20210611

REACTIONS (1)
  - Agranulocytosis [Recovered/Resolved]

NARRATIVE: CASE EVENT DATE: 20210707
